FAERS Safety Report 6209514-5 (Version None)
Quarter: 2009Q2

REPORT INFORMATION
  Report Type: 
  Country: None (occurrence: None)
  Receive Date: 20090601
  Receipt Date: 20090525
  Transmission Date: 20091009
  Serious: Yes (Other)
  Sender: FDA-Public Use
  Company Number: PHHY2009JP20588

PATIENT
  Age: 80 Year
  Sex: Male

DRUGS (5)
  1. TEGRETOL [Suspect]
     Dosage: 200 MG, BID
     Route: 048
     Dates: start: 20090501, end: 20090514
  2. LEUPLIN [Concomitant]
     Route: 058
  3. TAMSULOSIN HYDROCHLORIDE [Concomitant]
  4. ONON [Concomitant]
  5. MORPHINE [Concomitant]

REACTIONS (2)
  - CELL MARKER INCREASED [None]
  - INTERSTITIAL LUNG DISEASE [None]
